FAERS Safety Report 4879787-X (Version None)
Quarter: 2006Q1

REPORT INFORMATION
  Report Type: 
  Country: None (occurrence: None)
  Receive Date: 20060113
  Receipt Date: 20060103
  Transmission Date: 20060701
  Serious: Yes (Hospitalization)
  Sender: FDA-Public Use
  Company Number: FR-GLAXOSMITHKLINE-B0406180A

PATIENT
  Age: 78 Year
  Sex: Female
  Weight: 73 kg

DRUGS (10)
  1. DEROXAT [Suspect]
     Dosage: 20MG PER DAY
     Route: 048
     Dates: end: 20051016
  2. DEPAMIDE [Suspect]
     Dosage: 3UNIT PER DAY
     Route: 048
     Dates: end: 20051016
  3. ZOLPIDEM TARTRATE [Suspect]
     Dosage: 5MG PER DAY
     Route: 048
     Dates: end: 20051022
  4. ANAFRANIL [Suspect]
     Dosage: 20MG PER DAY
     Route: 048
     Dates: end: 20051016
  5. ATHYMIL [Suspect]
     Route: 048
     Dates: end: 20051016
  6. CORTANCYL [Concomitant]
     Dosage: 19MG PER DAY
     Route: 048
  7. DIFFU K [Concomitant]
     Route: 065
  8. KARDEGIC [Concomitant]
     Route: 065
  9. LEVOTHYROXINE SODIUM [Concomitant]
     Route: 048
  10. TOPALGIC ( FRANCE ) [Concomitant]
     Route: 048

REACTIONS (2)
  - DRUG INTERACTION [None]
  - FALL [None]
